FAERS Safety Report 6986686-6 (Version None)
Quarter: 2010Q3

REPORT INFORMATION
  Report Type: 
  Country: None (occurrence: None)
  Receive Date: 20100915
  Receipt Date: 20090715
  Transmission Date: 20110219
  Serious: No
  Sender: FDA-Public Use
  Company Number: US-WYE-H10180509

PATIENT
  Sex: Female

DRUGS (3)
  1. PRISTIQ [Suspect]
     Indication: DEPRESSION
     Dosage: 50 MG EVERY 1 TOT
     Route: 048
     Dates: start: 20090714, end: 20090714
  2. PRISTIQ [Suspect]
     Indication: NEUROPATHY PERIPHERAL
  3. LOPRESSOR [Concomitant]

REACTIONS (2)
  - NAUSEA [None]
  - VOMITING [None]
